FAERS Safety Report 19660995 (Version 1)
Quarter: 2021Q3

REPORT INFORMATION
  Report Type: Spontaneous
  Country: CN (occurrence: CN)
  Receive Date: 20210805
  Receipt Date: 20210805
  Transmission Date: 20211014
  Serious: Yes (Hospitalization)
  Sender: FDA-Public Use
  Company Number: CN-GLAXOSMITHKLINE-CN2021APC160681

PATIENT
  Age: 13 Year
  Sex: Female

DRUGS (1)
  1. LAMICTAL [Suspect]
     Active Substance: LAMOTRIGINE
     Indication: BIPOLAR DISORDER
     Dosage: 0.25 DF, QD, 1/4 TH TAB QD
     Route: 048
     Dates: start: 20210707

REACTIONS (8)
  - Biliary tract disorder [Unknown]
  - Insomnia [Unknown]
  - Pruritus [Recovering/Resolving]
  - Drug hypersensitivity [Unknown]
  - Off label use [Recovered/Resolved]
  - Wrong technique in product usage process [Recovered/Resolved]
  - Rash [Recovering/Resolving]
  - Liver disorder [Unknown]

NARRATIVE: CASE EVENT DATE: 20210717
